FAERS Safety Report 6713398-6 (Version None)
Quarter: 2010Q2

REPORT INFORMATION
  Report Type: 
  Country: None (occurrence: None)
  Receive Date: 20100506
  Receipt Date: 20100426
  Transmission Date: 20101027
  Serious: Yes (Other)
  Sender: FDA-Public Use
  Company Number: US-AMGEN-QUU408370

PATIENT
  Sex: Female

DRUGS (2)
  1. NPLATE [Suspect]
     Indication: THROMBOCYTOPENIA
     Dates: start: 20090226, end: 20100316
  2. CORTICOSTEROIDS [Concomitant]
     Dates: start: 20090122

REACTIONS (1)
  - HEPATIC CIRRHOSIS [None]
